FAERS Safety Report 19735748 (Version 1)
Quarter: 2021Q3

REPORT INFORMATION
  Report Type: Other
  Country: CN (occurrence: CN)
  Receive Date: 20210824
  Receipt Date: 20210824
  Transmission Date: 20211014
  Serious: Yes (Hospitalization)
  Sender: FDA-Public Use
  Company Number: CN-ROCHE-2872599

PATIENT
  Age: 28 Year
  Sex: Male

DRUGS (3)
  1. TECENTRIQ [Suspect]
     Active Substance: ATEZOLIZUMAB
     Indication: HEPATIC CANCER
     Dosage: SUBSEQUENT DOSE ON 06/AUG/2021 OF ATEZOLIZUMAB
     Route: 041
     Dates: start: 20210709
  2. OMEPRAZOLE. [Concomitant]
     Active Substance: OMEPRAZOLE
     Indication: CHRONIC GASTRITIS
  3. AVASTIN [Suspect]
     Active Substance: BEVACIZUMAB
     Indication: HEPATIC CANCER
     Dosage: ON 06/AUG/2021, RECEIVED SUBSEQUENT DOSE OF BEVACIZUMAB
     Route: 041
     Dates: start: 20210709

REACTIONS (3)
  - Pruritus [Not Recovered/Not Resolved]
  - Abdominal pain upper [Unknown]
  - Pneumonitis [Not Recovered/Not Resolved]

NARRATIVE: CASE EVENT DATE: 20210712
